FAERS Safety Report 9564851 (Version 2)
Quarter: 2013Q3

REPORT INFORMATION
  Report Type: Spontaneous
  Country: ES (occurrence: ES)
  Receive Date: 20130930
  Receipt Date: 20130930
  Transmission Date: 20140515
  Serious: Yes (Death, Hospitalization)
  Sender: FDA-Public Use
  Company Number: PHHY2011ES61315

PATIENT
  Age: 78 Year
  Sex: Male

DRUGS (4)
  1. OCTREOTIDE [Suspect]
     Dosage: 20 MG, EVERY 28 DAYS
  2. EVEROLIMUS [Suspect]
     Indication: INSULINOMA
     Dosage: 10 MG, PER DAY
  3. EVEROLIMUS [Suspect]
     Dosage: 5 MG, PER DAY
  4. DEXAMETHASONE [Concomitant]
     Indication: INSULINOMA
     Dosage: 2 MG, PER DAY

REACTIONS (2)
  - Pulmonary embolism [Fatal]
  - Hyperglycaemia [Recovered/Resolved]
